FAERS Safety Report 7209224-1 (Version None)
Quarter: 2011Q1

REPORT INFORMATION
  Report Type: 
  Country: None (occurrence: None)
  Receive Date: 20110104
  Receipt Date: 20101216
  Transmission Date: 20110831
  Serious: Yes (Hospitalization)
  Sender: FDA-Public Use
  Company Number: A0805942A

PATIENT
  Age: 53 Year
  Sex: Female

DRUGS (1)
  1. AVANDIA [Suspect]
     Dosage: 4MG PER DAY
     Route: 065
     Dates: start: 20000101, end: 20070501

REACTIONS (5)
  - CORONARY ARTERY DISEASE [None]
  - CARDIAC MURMUR [None]
  - AORTIC VALVE INCOMPETENCE [None]
  - AORTIC STENOSIS [None]
  - TRANSIENT ISCHAEMIC ATTACK [None]
